FAERS Safety Report 16028288 (Version 6)
Quarter: 2019Q2

REPORT INFORMATION
  Report Type: Report from Study
  Country: None (occurrence: CH)
  Receive Date: 20190304
  Receipt Date: 20190411
  Transmission Date: 20190711
  Serious: Yes (Hospitalization)
  Sender: FDA-Public Use
  Company Number: CH-ABBVIE-19S-151-2685945-00

PATIENT
  Age: 54 Year
  Sex: Male

DRUGS (4)
  1. DUODOPA [Suspect]
     Active Substance: CARBIDOPA\LEVODOPA
     Indication: PARKINSON^S DISEASE
     Route: 050
     Dates: start: 20181120, end: 20181122
  2. DUODOPA [Suspect]
     Active Substance: CARBIDOPA\LEVODOPA
     Dosage: MD 7 ML, CRD 2.5 ML/H, ED 1.5 ML, 16H THERAPY
     Route: 050
     Dates: start: 20190103, end: 20190308
  3. DUODOPA [Suspect]
     Active Substance: CARBIDOPA\LEVODOPA
     Dosage: MD 7 ML, CRD 2.2 ML/H, ED 1.5 ML, 16H THERAPY
     Route: 050
     Dates: start: 20181122, end: 20190103
  4. DUODOPA [Suspect]
     Active Substance: CARBIDOPA\LEVODOPA
     Dosage: MD 7 ML, CRD 3.0 ML/H, ED 1.5 ML, 16H THERAPY
     Route: 050
     Dates: start: 20190308

REACTIONS (10)
  - Device occlusion [Not Recovered/Not Resolved]
  - Pre-existing condition improved [Unknown]
  - Dyspnoea [Unknown]
  - Off label use [Recovered/Resolved]
  - Nocturia [Unknown]
  - Off label use [Recovered/Resolved]
  - Cough [Not Recovered/Not Resolved]
  - Therapeutic response unexpected [Unknown]
  - Dysphagia [Not Recovered/Not Resolved]
  - Choking [Unknown]

NARRATIVE: CASE EVENT DATE: 201903
